FAERS Safety Report 15867369 (Version 3)
Quarter: 2019Q1

REPORT INFORMATION
  Report Type: Spontaneous
  Country: FR (occurrence: FR)
  Receive Date: 20190125
  Receipt Date: 20190318
  Transmission Date: 20190417
  Serious: Yes (Hospitalization, Other)
  Sender: FDA-Public Use
  Company Number: FR-BRISTOL-MYERS SQUIBB COMPANY-BMS-2019-005330

PATIENT
  Age: 72 Year
  Sex: Male
  Weight: 95 kg

DRUGS (1)
  1. NIVOLUMAB [Suspect]
     Active Substance: NIVOLUMAB
     Indication: RENAL CANCER
     Dosage: UNK
     Route: 065
     Dates: start: 20170104, end: 201802

REACTIONS (9)
  - Urinary retention [Unknown]
  - Arthralgia [Unknown]
  - Haematuria [Unknown]
  - Renal failure [Unknown]
  - Malignant neoplasm progression [Unknown]
  - Anaemia [Unknown]
  - Product use in unapproved indication [Unknown]
  - Hypoglycaemia [Unknown]
  - Herpes zoster [Unknown]

NARRATIVE: CASE EVENT DATE: 201803
